FAERS Safety Report 14685125 (Version 2)
Quarter: 2018Q2

REPORT INFORMATION
  Report Type: Spontaneous
  Country: US (occurrence: US)
  Receive Date: 20180327
  Receipt Date: 20180425
  Transmission Date: 20180711
  Serious: Yes (Other)
  Sender: FDA-Public Use
  Company Number: US-BAYER-2018-057650

PATIENT
  Age: 55 Year
  Sex: Female

DRUGS (1)
  1. ALEVE [Suspect]
     Active Substance: NAPROXEN SODIUM
     Dosage: UNK

REACTIONS (15)
  - Immunosuppression [Unknown]
  - Joint swelling [Unknown]
  - Pain in extremity [Unknown]
  - Pain [Unknown]
  - Drug ineffective [Unknown]
  - Weight fluctuation [Unknown]
  - Drug effect decreased [Unknown]
  - Product use in unapproved indication [None]
  - Peripheral swelling [Unknown]
  - Sinusitis [Unknown]
  - Cough [Unknown]
  - Rheumatoid arthritis [Unknown]
  - Incorrect drug administration duration [Unknown]
  - Therapeutic response shortened [Unknown]
  - Musculoskeletal stiffness [Unknown]

NARRATIVE: CASE EVENT DATE: 201712
